FAERS Safety Report 5019827-0 (Version None)
Quarter: 2006Q2

REPORT INFORMATION
  Report Type: 
  Country: None (occurrence: None)
  Receive Date: 20060607
  Receipt Date: 20060530
  Transmission Date: 20061013
  Serious: Yes (Death)
  Sender: FDA-Public Use
  Company Number: GB-NOVOPROD-253709

PATIENT
  Age: 1 Year
  Sex: Female
  Weight: 7 kg

DRUGS (2)
  1. NOVOSEVEN [Suspect]
     Indication: POST PROCEDURAL HAEMORRHAGE
     Dosage: 90 UG/KG, SINGLE
     Route: 042
     Dates: start: 20060517, end: 20060517
  2. TRASYLOL [Concomitant]
     Dosage: 7 ML, QD
     Route: 042
     Dates: start: 20060516, end: 20060517

REACTIONS (1)
  - DEATH [None]
